FAERS Safety Report 25668256 (Version 1)
Quarter: 2025Q3

REPORT INFORMATION
  Report Type: Spontaneous
  Country: US (occurrence: US)
  Receive Date: 20250812
  Receipt Date: 20250812
  Transmission Date: 20251020
  Serious: No
  Sender: BAUSCH AND LOMB
  Company Number: US-BAUSCHBL-2025BNL013697

PATIENT
  Age: 80 Year
  Sex: Male

DRUGS (1)
  1. DORZOLAMIDE HYDROCHLORIDE [Suspect]
     Active Substance: DORZOLAMIDE HYDROCHLORIDE
     Indication: Glaucoma
     Route: 047

REACTIONS (5)
  - Intraocular pressure increased [Unknown]
  - Product delivery mechanism issue [Unknown]
  - Wrong technique in product usage process [Unknown]
  - Wrong dose [Unknown]
  - Liquid product physical issue [Unknown]
